FAERS Safety Report 8473099-3 (Version None)
Quarter: 2012Q2

REPORT INFORMATION
  Report Type: 
  Country: None (occurrence: None)
  Receive Date: 20120627
  Receipt Date: 20120612
  Transmission Date: 20120825
  Serious: Yes (Death, Life-Threatening, Other)
  Sender: FDA-Public Use
  Company Number: JP-ROCHE-1057932

PATIENT
  Sex: Female
  Weight: 33 kg

DRUGS (73)
  1. PREDNISOLONE [Suspect]
     Route: 048
     Dates: start: 20080101, end: 20090101
  2. PREDNISOLONE [Suspect]
     Route: 048
     Dates: start: 20090602, end: 20090608
  3. PREDNISOLONE [Suspect]
     Route: 048
     Dates: start: 20090812, end: 20090818
  4. PREDNISOLONE [Suspect]
     Route: 048
     Dates: start: 20100106, end: 20100202
  5. PREDNISOLONE [Suspect]
     Route: 048
     Dates: start: 20110101, end: 20111227
  6. PREDNISOLONE [Suspect]
     Route: 048
     Dates: start: 20120109, end: 20120112
  7. PREDNISOLONE [Suspect]
     Route: 048
     Dates: start: 20120220, end: 20120226
  8. METHYLPREDNISOLONE [Suspect]
     Route: 041
     Dates: start: 20090126, end: 20090128
  9. METHYLPREDNISOLONE [Suspect]
     Dosage: UNCERTAIN DOSAGE AND THREE COOL
     Route: 041
     Dates: start: 20110101, end: 20110101
  10. TACROLIMUS [Suspect]
     Indication: JUVENILE ARTHRITIS
     Route: 048
     Dates: start: 20090209, end: 20090216
  11. DEXAMETHASONE [Suspect]
     Route: 042
     Dates: start: 20120104, end: 20120104
  12. CYCLOSPORINE [Suspect]
     Indication: HISTIOCYTOSIS HAEMATOPHAGIC
     Route: 041
     Dates: start: 20120227, end: 20120311
  13. DEPAKENE [Concomitant]
     Indication: EPILEPSY
     Route: 048
     Dates: start: 20081212, end: 20120301
  14. ADALAT CC [Concomitant]
     Indication: HYPERTENSION
     Route: 048
     Dates: start: 20080421, end: 20120301
  15. ENALAPRIL MALEATE [Concomitant]
     Indication: HYPERTENSION
     Route: 048
     Dates: start: 20080421, end: 20120301
  16. ACTEMRA [Suspect]
     Route: 041
     Dates: start: 20090909
  17. PREDNISOLONE [Suspect]
     Route: 048
     Dates: start: 20090630, end: 20090630
  18. PREDNISOLONE [Suspect]
     Route: 048
     Dates: start: 20111228, end: 20111229
  19. PREDNISOLONE [Suspect]
     Route: 048
     Dates: start: 20120123, end: 20120205
  20. ACTEMRA [Suspect]
     Indication: JUVENILE ARTHRITIS
     Route: 041
     Dates: start: 20090421, end: 20111228
  21. PREDNISOLONE [Suspect]
     Route: 048
     Dates: start: 20090129, end: 20090201
  22. PREDNISOLONE [Suspect]
     Route: 048
     Dates: start: 20090609, end: 20090615
  23. PREDNISOLONE [Suspect]
     Route: 048
     Dates: start: 20090616, end: 20090622
  24. PREDNISOLONE [Suspect]
     Route: 048
     Dates: start: 20090701, end: 20090713
  25. PREDNISOLONE [Suspect]
     Route: 048
     Dates: start: 20120102, end: 20120105
  26. TACROLIMUS [Suspect]
     Route: 048
     Dates: start: 20090522
  27. TACROLIMUS [Suspect]
     Route: 048
     Dates: start: 20120123, end: 20120219
  28. DEXAMETHASONE [Suspect]
     Route: 042
     Dates: start: 20090216, end: 20090413
  29. CYCLOSPORINE [Suspect]
     Indication: JUVENILE ARTHRITIS
     Route: 041
     Dates: start: 20111230, end: 20120105
  30. IBRUPROFEN [Concomitant]
     Indication: JUVENILE ARTHRITIS
     Route: 048
     Dates: start: 20080327, end: 20120301
  31. FAMOTIDINE [Concomitant]
     Indication: GASTRIC ULCER
     Route: 048
     Dates: start: 20080311, end: 20120301
  32. PREDNISOLONE [Suspect]
     Route: 048
     Dates: start: 20090826, end: 20090923
  33. PREDNISOLONE [Suspect]
     Route: 048
     Dates: start: 20090924, end: 20091020
  34. PREDNISOLONE [Suspect]
     Route: 048
     Dates: start: 20091118, end: 20100105
  35. PREDNISOLONE [Suspect]
     Route: 048
     Dates: start: 20120213, end: 20120219
  36. METHYLPREDNISOLONE [Suspect]
     Indication: JUVENILE ARTHRITIS
     Dosage: UNCERTAIN DOSAGE AND THREE COOL
     Route: 041
     Dates: start: 20080101, end: 20080101
  37. METHYLPREDNISOLONE [Suspect]
     Route: 041
     Dates: start: 20090202, end: 20090204
  38. METHYLPREDNISOLONE [Suspect]
     Route: 041
     Dates: start: 20111230, end: 20120101
  39. TACROLIMUS [Suspect]
     Route: 048
     Dates: start: 20090217, end: 20090219
  40. DEXAMETHASONE [Suspect]
     Indication: JUVENILE ARTHRITIS
     Route: 042
     Dates: start: 20090205, end: 20090205
  41. COLCHICINE [Concomitant]
     Indication: JUVENILE ARTHRITIS
     Route: 048
     Dates: start: 20120116, end: 20120122
  42. ACTONEL [Concomitant]
     Indication: OSTEOPOROSIS
     Route: 048
     Dates: start: 20090313, end: 20120301
  43. PREDNISOLONE [Suspect]
     Route: 048
     Dates: start: 20090122, end: 20090125
  44. PREDNISOLONE [Suspect]
     Route: 048
     Dates: start: 20090819, end: 20090825
  45. PREDNISOLONE [Suspect]
     Route: 048
     Dates: start: 20091021, end: 20091117
  46. PREDNISOLONE [Suspect]
     Route: 048
     Dates: start: 20120206, end: 20120212
  47. METHYLPREDNISOLONE [Suspect]
     Route: 041
     Dates: start: 20120106, end: 20120108
  48. METHYLPREDNISOLONE [Suspect]
     Route: 041
     Dates: start: 20120113, end: 20120115
  49. METHYLPREDNISOLONE [Suspect]
     Route: 041
     Dates: start: 20120227, end: 20120229
  50. TACROLIMUS [Suspect]
     Route: 048
     Dates: start: 20120116, end: 20120120
  51. PREDNISOLONE [Suspect]
     Route: 048
     Dates: start: 20090205, end: 20090208
  52. PREDNISOLONE [Suspect]
     Route: 048
     Dates: start: 20090209, end: 20090528
  53. PREDNISOLONE [Suspect]
     Route: 048
     Dates: start: 20090529, end: 20090601
  54. PREDNISOLONE [Suspect]
     Route: 048
     Dates: start: 20090728, end: 20090811
  55. PREDNISOLONE [Suspect]
     Route: 048
     Dates: start: 20110101, end: 20110101
  56. PREDNISOLONE [Suspect]
     Route: 048
     Dates: start: 20120121, end: 20120122
  57. METHYLPREDNISOLONE [Suspect]
     Route: 041
     Dates: start: 20090119, end: 20090121
  58. ALFAROL [Concomitant]
     Indication: OSTEOPOROSIS
     Route: 048
     Dates: start: 20080324, end: 20120301
  59. METHOTREXATE [Concomitant]
     Indication: JUVENILE ARTHRITIS
     Route: 048
     Dates: start: 20110406, end: 20120301
  60. FOLIAMIN [Concomitant]
     Indication: PROPHYLAXIS
     Route: 048
     Dates: start: 20110406, end: 20120301
  61. ACTEMRA [Suspect]
     Route: 041
     Dates: start: 20120104, end: 20120126
  62. ACTEMRA [Suspect]
     Route: 041
     Dates: start: 20120210, end: 20120224
  63. PREDNISOLONE [Suspect]
     Indication: JUVENILE ARTHRITIS
     Route: 048
     Dates: start: 20080101, end: 20080101
  64. PREDNISOLONE [Suspect]
     Route: 048
     Dates: start: 20090623, end: 20090629
  65. PREDNISOLONE [Suspect]
     Route: 048
     Dates: start: 20100203, end: 20110101
  66. CLOBAZAM [Concomitant]
     Indication: EPILEPSY
     Dosage: DRUG REPROTED AS MYSTAN
     Route: 048
     Dates: start: 20090306, end: 20120301
  67. ACTEMRA [Suspect]
     Route: 041
     Dates: start: 20090728, end: 20090826
  68. PREDNISOLONE [Suspect]
     Route: 048
     Dates: start: 20090714, end: 20090727
  69. PREDNISOLONE [Suspect]
     Route: 048
     Dates: start: 20120116, end: 20120120
  70. TACROLIMUS [Suspect]
     Route: 048
     Dates: start: 20090220, end: 20090521
  71. DEXAMETHASONE [Suspect]
     Route: 042
     Dates: start: 20090209, end: 20090209
  72. DEXAMETHASONE [Suspect]
     Route: 042
     Dates: start: 20090212, end: 20090212
  73. COLCHICINE [Concomitant]
     Route: 048
     Dates: start: 20120123, end: 20120226

REACTIONS (10)
  - PNEUMOCYSTIS JIROVECI PNEUMONIA [None]
  - JUVENILE ARTHRITIS [None]
  - SHOCK HAEMORRHAGIC [None]
  - DEVICE RELATED INFECTION [None]
  - STAPHYLOCOCCAL SEPSIS [None]
  - HAEMOTHORAX [None]
  - HISTIOCYTOSIS HAEMATOPHAGIC [None]
  - PNEUMOTHORAX [None]
  - ORAL HERPES [None]
  - GASTRIC ULCER HAEMORRHAGE [None]
